FAERS Safety Report 6259436-9 (Version None)
Quarter: 2009Q3

REPORT INFORMATION
  Report Type: 
  Country: None (occurrence: None)
  Receive Date: 20090708
  Receipt Date: 20070820
  Transmission Date: 20100115
  Serious: Yes (Hospitalization, Other)
  Sender: FDA-Public Use
  Company Number: US-ASTRAZENECA-2006UW03293

PATIENT
  Age: 472 Month
  Sex: Male
  Weight: 104.3 kg

DRUGS (30)
  1. SEROQUEL [Suspect]
     Indication: BIPOLAR DISORDER
     Route: 048
     Dates: start: 20050503, end: 20060101
  2. SEROQUEL [Suspect]
     Indication: SCHIZOPHRENIA
     Route: 048
     Dates: start: 20050503, end: 20060101
  3. SEROQUEL [Suspect]
     Route: 048
     Dates: start: 20060101, end: 20060601
  4. SEROQUEL [Suspect]
     Route: 048
     Dates: start: 20060101, end: 20060601
  5. SEROQUEL [Suspect]
     Dosage: 100 - 300 MG
     Route: 048
     Dates: start: 20050505, end: 20060517
  6. SEROQUEL [Suspect]
     Dosage: 100 - 300 MG
     Route: 048
     Dates: start: 20050505, end: 20060517
  7. ABILIFY [Concomitant]
     Dates: start: 20060101
  8. HALDOL [Concomitant]
     Dates: start: 19880101, end: 19980101
  9. RISPERDAL [Concomitant]
     Dates: start: 19930101, end: 20030101
  10. DEPAKOTE [Concomitant]
     Dates: start: 20050101
  11. AMBIEN [Concomitant]
     Route: 048
  12. NORVASC [Concomitant]
     Route: 048
  13. ASPIRIN [Concomitant]
     Route: 065
  14. BENADRYL [Concomitant]
     Route: 065
  15. COGENTIN [Concomitant]
     Dosage: 1 - 2 MG
     Route: 048
  16. CLONIDINE [Concomitant]
     Dosage: 0.1 MG - 0.2 MG
     Route: 048
  17. LASIX [Concomitant]
     Route: 065
  18. ZESTORETIC [Concomitant]
     Dosage: 10 MG/12.5 MG
     Route: 065
  19. ZESTORETIC [Concomitant]
     Dosage: 12 MG/ 12.5 MG
     Route: 065
  20. ATIVAN [Concomitant]
     Route: 048
  21. TOPROL-XL [Concomitant]
     Dosage: 50 MG - 60 MG
     Route: 065
  22. NITROSTAT [Concomitant]
     Route: 065
  23. TRICOR [Concomitant]
     Dosage: 48 MG - 145 MG
     Route: 048
  24. ZOCOR [Concomitant]
     Route: 065
  25. AMARYL [Concomitant]
     Route: 065
  26. COUMADIN [Concomitant]
     Dosage: 1 MG - 5 MG
     Route: 065
  27. FLAGYL [Concomitant]
     Route: 065
  28. LOPID [Concomitant]
     Route: 065
  29. PACERONE [Concomitant]
     Route: 048
  30. SOTALOL HYDROCHLORIDE [Concomitant]
     Dosage: 40 MG - 80 MG
     Route: 048

REACTIONS (4)
  - ATRIAL FIBRILLATION [None]
  - CARDIAC FIBRILLATION [None]
  - DIABETES MELLITUS [None]
  - WEIGHT INCREASED [None]
